FAERS Safety Report 5843718-6 (Version None)
Quarter: 2008Q3

REPORT INFORMATION
  Report Type: 
  Country: None (occurrence: None)
  Receive Date: 20080813
  Receipt Date: 20080425
  Transmission Date: 20090109
  Serious: No
  Sender: FDA-Public Use
  Company Number: US-BRISTOL-MYERS SQUIBB COMPANY-14165500

PATIENT
  Age: 54 Year
  Sex: Female
  Weight: 79 kg

DRUGS (7)
  1. IXEMPRA KIT [Suspect]
     Route: 051
     Dates: start: 20080421
  2. NEULASTA [Suspect]
     Dates: start: 20080422
  3. RELPAX [Concomitant]
  4. LEXAPRO [Concomitant]
  5. ACIPHEX [Concomitant]
  6. VITAMIN B6 [Concomitant]
  7. ENALAPRIL MALEATE [Concomitant]

REACTIONS (11)
  - EPISTAXIS [None]
  - GAIT DISTURBANCE [None]
  - HEADACHE [None]
  - INCREASED UPPER AIRWAY SECRETION [None]
  - MIGRAINE [None]
  - MUSCLE SPASMS [None]
  - MUSCULAR WEAKNESS [None]
  - NASAL CONGESTION [None]
  - NECK PAIN [None]
  - PAIN [None]
  - RESPIRATORY TRACT CONGESTION [None]
